FAERS Safety Report 7626688-X (Version None)
Quarter: 2011Q3

REPORT INFORMATION
  Report Type: 
  Country: None (occurrence: None)
  Receive Date: 20110721
  Receipt Date: 20110715
  Transmission Date: 20111222
  Serious: Yes (Other)
  Sender: FDA-Public Use
  Company Number: US-ROCHE-790530

PATIENT
  Sex: Female

DRUGS (1)
  1. BONIVA [Suspect]
     Dosage: SINCE 3 YEARS
     Route: 065

REACTIONS (3)
  - TOOTH EXTRACTION [None]
  - BONE LOSS [None]
  - TOOTH DISORDER [None]
